FAERS Safety Report 24897012 (Version 1)
Quarter: 2025Q1

REPORT INFORMATION
  Report Type: Spontaneous
  Country: US (occurrence: US)
  Receive Date: 20250128
  Receipt Date: 20250128
  Transmission Date: 20250409
  Serious: No
  Sender: ALKEM
  Company Number: US-ALKEM LABORATORIES LIMITED-US-ALKEM-2024-04916

PATIENT
  Sex: Female

DRUGS (1)
  1. CEPHALEXIN [Suspect]
     Active Substance: CEPHALEXIN
     Indication: Urinary tract infection
     Dosage: 500 MILLIGRAM, QD ( ONLY ONE CAPSULE TAKEN)
     Route: 048
     Dates: start: 20240301, end: 20240301

REACTIONS (2)
  - Exposure during pregnancy [Unknown]
  - Expired product administered [Unknown]

NARRATIVE: CASE EVENT DATE: 20240301
